FAERS Safety Report 24578121 (Version 2)
Quarter: 2025Q1

REPORT INFORMATION
  Report Type: Spontaneous
  Country: AU (occurrence: AU)
  Receive Date: 20241104
  Receipt Date: 20250108
  Transmission Date: 20250408
  Serious: Yes (Death, Other)
  Sender: BEIGENE
  Company Number: AU-BEIGENE-BGN-2024-017221

PATIENT

DRUGS (2)
  1. BRUKINSA [Suspect]
     Active Substance: ZANUBRUTINIB
     Indication: Mantle cell lymphoma refractory
  2. IMBRUVICA [Suspect]
     Active Substance: IBRUTINIB
     Indication: Mantle cell lymphoma refractory

REACTIONS (4)
  - Mantle cell lymphoma recurrent [Fatal]
  - Neuropathy peripheral [Unknown]
  - Skin haemorrhage [Unknown]
  - Drug intolerance [Unknown]
